FAERS Safety Report 7583095-6 (Version None)
Quarter: 2011Q2

REPORT INFORMATION
  Report Type: 
  Country: None (occurrence: None)
  Receive Date: 20110527
  Receipt Date: 20101004
  Transmission Date: 20111010
  Serious: Yes (Other)
  Sender: FDA-Public Use
  Company Number: US201005000611

PATIENT
  Sex: Female
  Weight: 85.7 kg

DRUGS (4)
  1. BYETTA [Suspect]
  2. DRUG USED IN DIABETES [Concomitant]
  3. EXENATIDE PEN (EXENATIDE PEN) [Concomitant]
  4. ANTIDEPRESSANTS [Concomitant]

REACTIONS (2)
  - RENAL FAILURE [None]
  - PANCREATITIS [None]
